FAERS Safety Report 19714472 (Version 1)
Quarter: 2021Q3

REPORT INFORMATION
  Report Type: Spontaneous
  Country: US (occurrence: US)
  Receive Date: 20210817
  Receipt Date: 20210817
  Transmission Date: 20211014
  Serious: Yes (Disabling)
  Sender: FDA-Public Use
  Company Number: None

PATIENT
  Age: 65 Year
  Sex: Male
  Weight: 103.42 kg

DRUGS (5)
  1. TRELEGY ELLIPTA [Concomitant]
     Active Substance: FLUTICASONE FUROATE\UMECLIDINIUM BROMIDE\VILANTEROL TRIFENATATE
  2. LEVOFLOXACIN 750MG TABLETS GENERIC FOR LEVAQUIN 750MG TABLET [Suspect]
     Active Substance: LEVOFLOXACIN
     Indication: CHRONIC OBSTRUCTIVE PULMONARY DISEASE
     Dosage: ?          QUANTITY:5 DF DOSAGE FORM;?
     Dates: start: 20210605, end: 20210610
  3. AMLODIPINE BESYLATE. [Concomitant]
     Active Substance: AMLODIPINE BESYLATE
  4. REFRESH PLUS LUBICANT [Concomitant]
  5. LISINOPRIL. [Concomitant]
     Active Substance: LISINOPRIL

REACTIONS (4)
  - Neuropathy peripheral [None]
  - Peripheral swelling [None]
  - Tendon pain [None]
  - Impaired quality of life [None]

NARRATIVE: CASE EVENT DATE: 20210610
